FAERS Safety Report 5026021-6 (Version None)
Quarter: 2006Q2

REPORT INFORMATION
  Report Type: 
  Country: None (occurrence: None)
  Receive Date: 20060614
  Receipt Date: 20060509
  Transmission Date: 20061013
  Serious: Yes (Death)
  Sender: FDA-Public Use
  Company Number: US-ROCHE-447406

PATIENT
  Age: 53 Year
  Sex: Male

DRUGS (2)
  1. PEGASYS [Suspect]
     Route: 065
     Dates: start: 20060326
  2. COPEGUS [Suspect]
     Route: 065
     Dates: start: 20060326

REACTIONS (3)
  - PNEUMOCOCCAL SEPSIS [None]
  - PYREXIA [None]
  - SEPTIC SHOCK [None]
